FAERS Safety Report 5716185-0 (Version None)
Quarter: 2008Q2

REPORT INFORMATION
  Report Type: 
  Country: None (occurrence: None)
  Receive Date: 20080424
  Receipt Date: 20080415
  Transmission Date: 20081010
  Serious: Yes (Other)
  Sender: FDA-Public Use
  Company Number: US-JNJFOC-20080300378

PATIENT
  Sex: Female
  Weight: 73.48 kg

DRUGS (10)
  1. DURAGESIC-100 [Suspect]
     Route: 062
  2. DURAGESIC-100 [Suspect]
     Route: 062
  3. DURAGESIC-100 [Suspect]
     Route: 062
  4. DURAGESIC-100 [Suspect]
     Route: 062
  5. DURAGESIC-100 [Suspect]
     Indication: ARTHRITIS
     Route: 062
  6. FENTANYL TRANSDERMAL SYSTEM [Suspect]
     Indication: ARTHRITIS
     Route: 062
  7. ALTACE [Concomitant]
     Indication: HYPERTENSION
     Route: 048
  8. ASPIRIN [Concomitant]
     Route: 048
  9. MULTI-VITAMIN [Concomitant]
     Route: 048
  10. PROTONIX [Concomitant]
     Indication: GASTROOESOPHAGEAL REFLUX DISEASE
     Route: 048

REACTIONS (13)
  - BLOOD CHOLESTEROL INCREASED [None]
  - BONE DISORDER [None]
  - CHILLS [None]
  - DECREASED APPETITE [None]
  - DEEP VEIN THROMBOSIS [None]
  - DIABETES MELLITUS [None]
  - DRUG PRESCRIBING ERROR [None]
  - DYSGEUSIA [None]
  - INAPPROPRIATE SCHEDULE OF DRUG ADMINISTRATION [None]
  - NAUSEA [None]
  - PAIN [None]
  - POLYMYALGIA RHEUMATICA [None]
  - WITHDRAWAL SYNDROME [None]
